FAERS Safety Report 5747362-0 (Version None)
Quarter: 2008Q2

REPORT INFORMATION
  Report Type: 
  Country: None (occurrence: None)
  Receive Date: 20080523
  Receipt Date: 20080306
  Transmission Date: 20081010
  Serious: No
  Sender: FDA-Public Use
  Company Number: US-BAYER-200816689NA

PATIENT
  Age: 44 Year
  Sex: Female
  Weight: 64 kg

DRUGS (2)
  1. MIRENA [Suspect]
     Indication: CONTRACEPTION
     Route: 015
     Dates: start: 20071226, end: 20080303
  2. HYDROCHLOROTHIAZIDE [Concomitant]
     Indication: UNEVALUABLE EVENT
     Route: 065

REACTIONS (5)
  - ABDOMINAL PAIN [None]
  - NAUSEA [None]
  - PELVIC PAIN [None]
  - VAGINAL HAEMORRHAGE [None]
  - VULVOVAGINAL DISCOMFORT [None]
